FAERS Safety Report 7123629-9 (Version None)
Quarter: 2010Q4

REPORT INFORMATION
  Report Type: 
  Country: None (occurrence: None)
  Receive Date: 20101125
  Receipt Date: 20101118
  Transmission Date: 20110411
  Serious: Yes (Other)
  Sender: FDA-Public Use
  Company Number: JP-PFIZER INC-2010132848

PATIENT
  Age: 23 Year
  Sex: Female

DRUGS (6)
  1. ZITHROMAC SR [Suspect]
     Dosage: 2 G, SINGLE
     Route: 048
     Dates: start: 20101019, end: 20101019
  2. MUCODYNE [Concomitant]
     Route: 048
  3. MEDICON [Concomitant]
     Route: 048
  4. CODEINE PHOSPHATE [Concomitant]
  5. GALENIC /FLUTICASONE/SALMETEROL/ [Concomitant]
  6. ALLEGRA [Concomitant]
     Route: 048

REACTIONS (1)
  - VAGINAL HAEMORRHAGE [None]
